FAERS Safety Report 6455531-X (Version None)
Quarter: 2009Q4

REPORT INFORMATION
  Report Type: 
  Country: None (occurrence: None)
  Receive Date: 20091125
  Receipt Date: 20090928
  Transmission Date: 20100525
  Serious: No
  Sender: FDA-Public Use
  Company Number: US-ABBOTT-09P-163-0600148-00

PATIENT
  Age: 74 Year
  Sex: Male

DRUGS (5)
  1. SIMCOR [Suspect]
     Indication: BLOOD CHOLESTEROL INCREASED
     Dosage: 750MG DAILY
     Dates: start: 20090101, end: 20090601
  2. SIMCOR [Suspect]
     Dosage: 1500MG DAILY
     Dates: start: 20090601
  3. METOPROLOL SUCCINATE [Concomitant]
     Indication: HYPERTENSION
  4. RAMIPRIL [Concomitant]
     Indication: HYPERTENSION
  5. BABY ASPIRIN [Concomitant]
     Indication: PROPHYLAXIS
     Dates: start: 20090101

REACTIONS (3)
  - FATIGUE [None]
  - PRURITUS [None]
  - RASH [None]
